FAERS Safety Report 18027135 (Version 2)
Quarter: 2021Q2

REPORT INFORMATION
  Report Type: Spontaneous
  Country: SK (occurrence: SK)
  Receive Date: 20200715
  Receipt Date: 20210528
  Transmission Date: 20210717
  Serious: Yes (Other)
  Sender: FDA-Public Use
  Company Number: NVSC2020SK198651

PATIENT
  Age: 63 Year
  Sex: Female

DRUGS (1)
  1. ADALIMUMAB [Suspect]
     Active Substance: ADALIMUMAB
     Indication: CROHN^S DISEASE
     Dosage: UNK
     Route: 065
     Dates: start: 201806, end: 20180921

REACTIONS (9)
  - Skin reaction [Recovered/Resolved]
  - Hidradenitis [Recovered/Resolved]
  - Palmoplantar pustulosis [Recovered/Resolved]
  - Folliculitis [Recovered/Resolved]
  - Paradoxical drug reaction [Recovered/Resolved]
  - Immune-mediated adverse reaction [Recovered/Resolved]
  - Paradoxical psoriasis [Recovered/Resolved]
  - Pustular psoriasis [Recovered/Resolved]
  - Arthralgia [Not Recovered/Not Resolved]

NARRATIVE: CASE EVENT DATE: 2018
